FAERS Safety Report 10564016 (Version 1)
Quarter: 2014Q4

REPORT INFORMATION
  Report Type: Spontaneous
  Country: DE (occurrence: DE)
  Receive Date: 20141104
  Receipt Date: 20141104
  Transmission Date: 20150529
  Serious: Yes (Other)
  Sender: FDA-Public Use
  Company Number: DE-PFIZER INC-2014299121

PATIENT
  Age: 26 Year
  Sex: Female

DRUGS (1)
  1. CLINDAMYCIN HCL [Suspect]
     Active Substance: CLINDAMYCIN HYDROCHLORIDE
     Indication: PERIODONTAL DISEASE
     Dosage: 300 MG, 4X/DAY, 1-1-1-1
     Route: 048

REACTIONS (2)
  - Respiratory distress [Recovered/Resolved]
  - Chest discomfort [Recovered/Resolved]
